FAERS Safety Report 18324372 (Version 1)
Quarter: 2020Q3

REPORT INFORMATION
  Report Type: Spontaneous
  Country: CA (occurrence: CA)
  Receive Date: 20200928
  Receipt Date: 20200928
  Transmission Date: 20201103
  Serious: Yes (Hospitalization)
  Sender: FDA-Public Use
  Company Number: CA-ANIPHARMA-2020-CA-001799

PATIENT
  Age: 70 Year
  Sex: Male

DRUGS (1)
  1. INDERAL LA [Suspect]
     Active Substance: PROPRANOLOL HYDROCHLORIDE
     Indication: PRODUCT USED FOR UNKNOWN INDICATION
     Dosage: 30 MG
     Route: 065

REACTIONS (7)
  - Cardiac failure [Unknown]
  - Drug dependence [Unknown]
  - Withdrawal syndrome [Unknown]
  - Heart rate decreased [Unknown]
  - Hypotension [Unknown]
  - Confusional state [Unknown]
  - Tremor [Unknown]
